FAERS Safety Report 21746918 (Version 2)
Quarter: 2024Q1

REPORT INFORMATION
  Report Type: Spontaneous
  Country: US (occurrence: US)
  Receive Date: 20221219
  Receipt Date: 20240105
  Transmission Date: 20240409
  Serious: No
  Sender: FDA-Public Use
  Company Number: US-SA-SAC20221216000728

PATIENT
  Age: 53 Year
  Sex: Male
  Weight: 107.9 kg

DRUGS (6)
  1. DUPIXENT [Suspect]
     Active Substance: DUPILUMAB
     Indication: Dermatitis atopic
     Dosage: 300 MG, QOW
     Route: 058
     Dates: start: 202007
  2. CELEBREX [Concomitant]
     Active Substance: CELECOXIB
  3. IRON [Concomitant]
     Active Substance: IRON
  4. ALLERGY RELIEF [LORATADINE] [Concomitant]
  5. HERBALS\TURMERIC [Concomitant]
     Active Substance: HERBALS\TURMERIC
  6. DAILY-VITE [Concomitant]

REACTIONS (3)
  - Eye disorder [Recovering/Resolving]
  - Food allergy [Not Recovered/Not Resolved]
  - Drug hypersensitivity [Recovering/Resolving]

NARRATIVE: CASE EVENT DATE: 20201101
